FAERS Safety Report 20620004 (Version 1)
Quarter: 2022Q1

REPORT INFORMATION
  Report Type: Spontaneous
  Country: US (occurrence: US)
  Receive Date: 20220322
  Receipt Date: 20220322
  Transmission Date: 20220423
  Serious: Yes (Other)
  Sender: FDA-Public Use
  Company Number: US-drreddys-LIT/USA/22/0147871

PATIENT
  Age: 52 Year
  Sex: Male

DRUGS (4)
  1. DIVALPROEX SODIUM [Suspect]
     Active Substance: DIVALPROEX SODIUM
     Indication: Headache
     Dosage: MULTIPLE DOSES
  2. HYDROMORPHONE HYDROCHLORIDE [Suspect]
     Active Substance: HYDROMORPHONE HYDROCHLORIDE
     Indication: Headache
     Dosage: MULTIPLE DOSES
  3. KETOROLAC [Suspect]
     Active Substance: KETOROLAC TROMETHAMINE
     Indication: Headache
     Dosage: MULTIPLE DOSES
  4. MAGNESIUM SULFATE [Suspect]
     Active Substance: MAGNESIUM SULFATE
     Indication: Headache
     Dosage: MULTIPLE DOSES
     Route: 042

REACTIONS (1)
  - Drug ineffective [Unknown]
